FAERS Safety Report 15638544 (Version 1)
Quarter: 2018Q4

REPORT INFORMATION
  Report Type: Spontaneous
  Country: US (occurrence: US)
  Receive Date: 20181120
  Receipt Date: 20181120
  Transmission Date: 20190205
  Serious: No
  Sender: FDA-Public Use
  Company Number: US-ENDO PHARMACEUTICALS INC-2018-014776

PATIENT
  Sex: Female

DRUGS (3)
  1. ALPRAZOLAM TABLETS 0.25 MG [Suspect]
     Active Substance: ALPRAZOLAM
     Indication: PANIC ATTACK
     Dosage: 1 DF, DAILY
     Route: 048
  2. ALPRAZOLAM TABLETS 0.25 MG [Suspect]
     Active Substance: ALPRAZOLAM
     Dosage: 1 DF, TID
     Route: 048
  3. ALPRAZOLAM TABLETS 0.25 MG [Suspect]
     Active Substance: ALPRAZOLAM
     Dosage: 1 DF, BID
     Route: 048

REACTIONS (3)
  - Drug intolerance [Unknown]
  - Anxiety [Unknown]
  - Malaise [Unknown]
